FAERS Safety Report 24664225 (Version 3)
Quarter: 2024Q4

REPORT INFORMATION
  Report Type: Report from Study
  Country: ES (occurrence: ES)
  Receive Date: 20241126
  Receipt Date: 20241212
  Transmission Date: 20250114
  Serious: Yes (Death, Other)
  Sender: ABBVIE
  Company Number: ES-ABBVIE-6018889

PATIENT
  Age: 60 Year
  Sex: Female

DRUGS (9)
  1. CARBIDOPA\LEVODOPA [Suspect]
     Active Substance: CARBIDOPA\LEVODOPA
     Indication: Parkinson^s disease
     Dosage: 240 MG/ML + 12 MG/ML, HIGH SPEED. 0.22ML/H; BASAL SPEED 0.20ML/H; LOW SPEED. 0.16ML/H; DOSIS EXTR...
     Route: 058
     Dates: start: 20241120, end: 20241120
  2. CARBIDOPA\LEVODOPA [Suspect]
     Active Substance: CARBIDOPA\LEVODOPA
     Dosage: 240 MG/ML + 12 MG/ML, HIGH SPEED. 0.33ML/H; BASAL DOSE 0.30ML/H; LOW DOSE. 0.24ML/H. 240 MG/ML + ...
     Route: 058
     Dates: start: 20241120, end: 20241120
  3. CARBIDOPA\LEVODOPA [Suspect]
     Active Substance: CARBIDOPA\LEVODOPA
     Dosage: 240 MG/ML + 12 MG/ML, HIGH DOSE 0.37ML/H; BASE SPEED 0.34ML/H; LOW SPEED. 0.27ML/H. 240 MG/ML + 1...
     Route: 058
     Dates: start: 20241120
  4. LEVODOPA [Concomitant]
     Active Substance: LEVODOPA
     Indication: Parkinson^s disease
  5. LEVODOPA [Concomitant]
     Active Substance: LEVODOPA
     Indication: Parkinson^s disease
  6. LEVODOPA [Concomitant]
     Active Substance: LEVODOPA
     Indication: Parkinson^s disease
  7. MIDAZOLAM [Concomitant]
     Active Substance: MIDAZOLAM
     Indication: Product used for unknown indication
     Dates: start: 202411
  8. MIDAZOLAM [Concomitant]
     Active Substance: MIDAZOLAM
     Indication: Product used for unknown indication
     Dates: start: 202411
  9. MORPHINE HYDROCHLORIDE [Concomitant]
     Active Substance: MORPHINE HYDROCHLORIDE
     Indication: Product used for unknown indication
     Dates: start: 202411

REACTIONS (16)
  - Death [Fatal]
  - Drug ineffective [Unknown]
  - Dyskinesia [Not Recovered/Not Resolved]
  - Rhabdomyolysis [Unknown]
  - Dehydration [Unknown]
  - Anuria [Unknown]
  - Sepsis [Unknown]
  - General physical health deterioration [Unknown]
  - Vomiting [Unknown]
  - Pulmonary function test abnormal [Unknown]
  - Respiratory tract infection [Unknown]
  - Blood creatine phosphokinase increased [Unknown]
  - Acute kidney injury [Unknown]
  - Aspiration [Unknown]
  - Pyrexia [Unknown]
  - Tachypnoea [Unknown]

NARRATIVE: CASE EVENT DATE: 20241101
